FAERS Safety Report 7693262-9 (Version None)
Quarter: 2011Q3

REPORT INFORMATION
  Report Type: 
  Country: None (occurrence: None)
  Receive Date: 20110816
  Receipt Date: 20110808
  Transmission Date: 20111222
  Serious: Yes (Death)
  Sender: FDA-Public Use
  Company Number: 2011SA051232

PATIENT
  Age: 75 Year
  Sex: Male

DRUGS (9)
  1. THEOPHYLLINE [Concomitant]
  2. XINAFOATE [Concomitant]
  3. SALMETEROL [Concomitant]
  4. FUTICASONE PROPIONATE [Concomitant]
  5. IPRATROPIUM BROMIDE [Concomitant]
  6. PLACEBO [Suspect]
     Indication: THROMBOSIS PROPHYLAXIS
  7. BROMIDE [Concomitant]
  8. XINAFOATE [Concomitant]
  9. ENOXAPARIN SODIUM [Suspect]
     Indication: THROMBOSIS PROPHYLAXIS
     Dosage: 40 MILLIGRAM(S); DAILY;SUBCUTANEOUS
     Route: 058
     Dates: start: 20080305, end: 20080310

REACTIONS (2)
  - UNRESPONSIVE TO STIMULI [None]
  - SUDDEN DEATH [None]
